FAERS Safety Report 15125861 (Version 1)
Quarter: 2018Q3

REPORT INFORMATION
  Report Type: Spontaneous
  Country: ES (occurrence: ES)
  Receive Date: 20180710
  Receipt Date: 20180710
  Transmission Date: 20181010
  Serious: Yes (Other)
  Sender: FDA-Public Use
  Company Number: ES-ABBVIE-18K-144-2409470-00

PATIENT
  Age: 43 Year
  Sex: Female
  Weight: 44 kg

DRUGS (5)
  1. HUMIRA [Suspect]
     Active Substance: ADALIMUMAB
     Indication: CROHN^S DISEASE
  2. HUMIRA [Suspect]
     Active Substance: ADALIMUMAB
     Indication: INFLAMMATORY BOWEL DISEASE
     Dosage: ONLY THE FIRST HUMIRA DOSE HAD BEEN ADMINISTERED, LOAD DOSE
     Route: 058
     Dates: start: 20180517, end: 20180517
  3. REMICADE [Suspect]
     Active Substance: INFLIXIMAB
     Indication: CROHN^S DISEASE
     Route: 065
     Dates: start: 20100611, end: 20170418
  4. IMUREL [Suspect]
     Active Substance: AZATHIOPRINE SODIUM
     Indication: CROHN^S DISEASE
     Route: 048
     Dates: start: 20100428, end: 201805
  5. REMSIMA [Suspect]
     Active Substance: INFLIXIMAB
     Indication: CROHN^S DISEASE
     Route: 065
     Dates: start: 20170419, end: 20180503

REACTIONS (3)
  - Hodgkin^s disease stage III [Recovering/Resolving]
  - Epstein-Barr virus test positive [Recovering/Resolving]
  - Chills [Unknown]

NARRATIVE: CASE EVENT DATE: 201805
